FAERS Safety Report 14314984 (Version 1)
Quarter: 2017Q4

REPORT INFORMATION
  Report Type: Spontaneous
  Country: FR (occurrence: FR)
  Receive Date: 20171221
  Receipt Date: 20171221
  Transmission Date: 20180321
  Serious: Yes (Hospitalization, Other)
  Sender: FDA-Public Use
  Company Number: PHHY2017FR163889

PATIENT
  Age: 38 Year
  Sex: Female

DRUGS (2)
  1. ANTIGONE [Concomitant]
     Active Substance: DESOGESTREL
     Indication: CONTRACEPTION
     Dosage: UNK
     Route: 065
  2. GILENYA [Suspect]
     Active Substance: FINGOLIMOD HYDROCHLORIDE
     Indication: RELAPSING-REMITTING MULTIPLE SCLEROSIS
     Dosage: 0.5 MG, QD
     Route: 065
     Dates: start: 201207, end: 20171101

REACTIONS (13)
  - Cerebral disorder [Not Recovered/Not Resolved]
  - General physical health deterioration [Unknown]
  - Blood folate decreased [Unknown]
  - Asthenia [Unknown]
  - Multiple sclerosis relapse [Recovered/Resolved]
  - Fatigue [Unknown]
  - Myalgia [Unknown]
  - Headache [Unknown]
  - Pain in extremity [Unknown]
  - Blood immunoglobulin M decreased [Unknown]
  - Condition aggravated [Unknown]
  - Migraine with aura [Unknown]
  - Bladder disorder [Unknown]

NARRATIVE: CASE EVENT DATE: 2013
